FAERS Safety Report 6627990-0 (Version None)
Quarter: 2010Q1

REPORT INFORMATION
  Report Type: 
  Country: None (occurrence: None)
  Receive Date: 20100311
  Receipt Date: 20090513
  Transmission Date: 20100710
  Serious: No
  Sender: FDA-Public Use
  Company Number: A0784104A

PATIENT
  Age: 66 Year
  Sex: Male

DRUGS (2)
  1. NICORETTE [Suspect]
     Dates: start: 20090506
  2. SALT WATER GARGLE [Concomitant]

REACTIONS (2)
  - GINGIVAL ERYTHEMA [None]
  - GINGIVAL PAIN [None]
